FAERS Safety Report 13640554 (Version 2)
Quarter: 2017Q3

REPORT INFORMATION
  Report Type: Report from Study
  Country: None (occurrence: US)
  Receive Date: 20170611
  Receipt Date: 20170823
  Transmission Date: 20171127
  Serious: Yes (Other)
  Sender: FDA-Public Use
  Company Number: US-ABBVIE-17K-163-1999182-00

PATIENT
  Age: 57 Year
  Sex: Female

DRUGS (2)
  1. HUMIRA [Suspect]
     Active Substance: ADALIMUMAB
     Indication: RHEUMATOID ARTHRITIS
     Route: 058
     Dates: start: 20161103, end: 2017
  2. HUMIRA [Suspect]
     Active Substance: ADALIMUMAB
     Route: 058
     Dates: start: 2017

REACTIONS (28)
  - Eye pain [Recovered/Resolved]
  - Paraesthesia [Not Recovered/Not Resolved]
  - Frustration tolerance decreased [Recovered/Resolved]
  - Injection site mass [Recovered/Resolved]
  - Hyperhidrosis [Not Recovered/Not Resolved]
  - Device issue [Unknown]
  - Joint stiffness [Unknown]
  - Drug effect incomplete [Unknown]
  - Joint swelling [Unknown]
  - Fatigue [Not Recovered/Not Resolved]
  - Depressed mood [Unknown]
  - Arthralgia [Not Recovered/Not Resolved]
  - Pharyngitis [Recovered/Resolved]
  - Anxiety [Recovered/Resolved]
  - Depression [Unknown]
  - Musculoskeletal stiffness [Not Recovered/Not Resolved]
  - Hyperkeratosis [Unknown]
  - Anxiety [Unknown]
  - Vision blurred [Not Recovered/Not Resolved]
  - Hypoaesthesia [Not Recovered/Not Resolved]
  - Ear infection [Recovered/Resolved]
  - Sinus congestion [Unknown]
  - Frustration tolerance decreased [Unknown]
  - Gait disturbance [Not Recovered/Not Resolved]
  - Nasal septum deviation [Unknown]
  - Loss of personal independence in daily activities [Not Recovered/Not Resolved]
  - Injection site pain [Unknown]
  - Spinal pain [Unknown]

NARRATIVE: CASE EVENT DATE: 2016
